FAERS Safety Report 5819496-3 (Version None)
Quarter: 2008Q3

REPORT INFORMATION
  Report Type: 
  Country: None (occurrence: None)
  Receive Date: 20080723
  Receipt Date: 20080714
  Transmission Date: 20090109
  Serious: Yes (Other)
  Sender: FDA-Public Use
  Company Number: CH-ELI_LILLY_AND_COMPANY-CH200806001360

PATIENT
  Age: 75 Year
  Sex: Female

DRUGS (1)
  1. FORTEO [Suspect]
     Indication: OSTEOPOROSIS
     Dosage: UNK, UNKNOWN
     Route: 058
     Dates: start: 20070901, end: 20080301

REACTIONS (5)
  - HAEMOLYSIS [None]
  - LYMPHOCYTE COUNT ABNORMAL [None]
  - PYREXIA [None]
  - SPLENOMEGALY [None]
  - WHITE BLOOD CELL COUNT ABNORMAL [None]
